FAERS Safety Report 18187515 (Version 1)
Quarter: 2020Q3

REPORT INFORMATION
  Report Type: Spontaneous
  Country: US (occurrence: US)
  Receive Date: 20200824
  Receipt Date: 20200824
  Transmission Date: 20201103
  Serious: Yes (Other)
  Sender: FDA-Public Use
  Company Number: US-MACLEODS PHARMACEUTICALS US LTD-MAC2020027751

PATIENT

DRUGS (2)
  1. TRIAMCINOLONE ACETONIDE. [Suspect]
     Active Substance: TRIAMCINOLONE ACETONIDE
     Dosage: UNK, EVERY, INJECTION, INTRAVITREAL
     Route: 031
  2. TRIAMCINOLONE ACETONIDE. [Suspect]
     Active Substance: TRIAMCINOLONE ACETONIDE
     Indication: CYSTOID MACULAR OEDEMA
     Dosage: UNK, EVERY, 4 MG/0.1 ML OF TRIAMCINOLONE ACETONIDE (40 MG/ML) TO THE RIGHT EYE, INJECTION, INTRAVITR
     Route: 031

REACTIONS (2)
  - Choroidal detachment [Recovering/Resolving]
  - Intraocular pressure increased [Unknown]
